FAERS Safety Report 9384385 (Version 8)
Quarter: 2014Q1

REPORT INFORMATION
  Report Type: Spontaneous
  Country: IE (occurrence: IE)
  Receive Date: 20130705
  Receipt Date: 20140219
  Transmission Date: 20141002
  Serious: Yes (Death, Hospitalization, Other)
  Sender: FDA-Public Use
  Company Number: PHFR2013IE003770

PATIENT
  Age: 63 Year
  Sex: Female

DRUGS (9)
  1. CLOZARIL [Suspect]
     Indication: SCHIZOPHRENIA
     Dosage: UNK
     Route: 048
     Dates: start: 20000404
  2. CLOZARIL [Suspect]
     Dosage: 400 MG, DAILY (150 MG MANE AND 250  MG NOCTE)
     Route: 048
  3. ESCITALOPRAM [Concomitant]
     Dosage: 20 MG, UNK
     Route: 048
  4. DIAMICRON [Concomitant]
     Dosage: 30 MG, DAILY
     Route: 048
  5. GLUCOPHAGE [Concomitant]
     Dosage: 500 MG, BID
     Route: 048
  6. PANTOPRAZOLE [Concomitant]
     Dosage: 40 MG, BID
     Route: 048
  7. BUTRANS//BUPRENORPHINE [Concomitant]
     Dosage: 10 UG, QW
  8. ENSURE [Concomitant]
     Dosage: DAILY
  9. ORAMORPH [Concomitant]
     Dosage: 2.5 ML, PRN

REACTIONS (10)
  - Lung neoplasm malignant [Fatal]
  - Hepatic cancer [Fatal]
  - Metastases to liver [Not Recovered/Not Resolved]
  - Terminal state [Unknown]
  - General physical health deterioration [Unknown]
  - Platelet count increased [Not Recovered/Not Resolved]
  - White blood cell count increased [Not Recovered/Not Resolved]
  - Neutrophil count increased [Not Recovered/Not Resolved]
  - Antipsychotic drug level above therapeutic [Unknown]
  - Haemoglobin decreased [Unknown]
